FAERS Safety Report 7450349-3 (Version None)
Quarter: 2011Q2

REPORT INFORMATION
  Report Type: 
  Country: None (occurrence: None)
  Receive Date: 20110422
  Receipt Date: 20110412
  Transmission Date: 20111010
  Serious: Yes (Hospitalization)
  Sender: FDA-Public Use
  Company Number: 2011P1005988

PATIENT
  Sex: Male
  Weight: 37 kg

DRUGS (1)
  1. AMMONUL [Suspect]
     Indication: AMMONIA INCREASED
     Dates: start: 20110331

REACTIONS (3)
  - HYPERSENSITIVITY [None]
  - NERVOUS SYSTEM DISORDER [None]
  - NEUROTOXICITY [None]
